FAERS Safety Report 15959674 (Version 1)
Quarter: 2019Q1

REPORT INFORMATION
  Report Type: Spontaneous
  Country: FR (occurrence: FR)
  Receive Date: 20190214
  Receipt Date: 20190214
  Transmission Date: 20190417
  Serious: Yes (Hospitalization)
  Sender: FDA-Public Use
  Company Number: FR-TEVA-2019-FR-1009647

PATIENT
  Age: 66 Year
  Sex: Female

DRUGS (3)
  1. COZAAR [Concomitant]
     Active Substance: LOSARTAN POTASSIUM
  2. AZILECT [Suspect]
     Active Substance: RASAGILINE MESYLATE
     Indication: PARKINSON^S DISEASE
     Dosage: 1 DOSAGE FORMS DAILY;
     Route: 048
     Dates: start: 201503, end: 201506
  3. NEBILOX [Concomitant]
     Active Substance: NEBIVOLOL HYDROCHLORIDE

REACTIONS (1)
  - Malignant melanoma [Recovered/Resolved with Sequelae]

NARRATIVE: CASE EVENT DATE: 201506
